FAERS Safety Report 9425880 (Version 1)
Quarter: 2013Q3

REPORT INFORMATION
  Report Type: Spontaneous
  Country: CA (occurrence: CA)
  Receive Date: 20130729
  Receipt Date: 20130729
  Transmission Date: 20140515
  Serious: Yes (Death, Hospitalization, Other)
  Sender: FDA-Public Use
  Company Number: CA-BAXTER-2013BAX021255

PATIENT
  Age: 76 Year
  Sex: Male

DRUGS (3)
  1. EXTRANEAL [Suspect]
     Indication: PERITONEAL DIALYSIS
     Route: 033
     Dates: start: 20110222, end: 20130604
  2. PHYSIONEAL 40 GLUCOSE 1.36% SOLUTION FOR PERITONEAL DIALYSIS [Suspect]
     Indication: PERITONEAL DIALYSIS
     Route: 033
     Dates: start: 20110222, end: 20130604
  3. PHYSIONEAL 40 GLUCOSE 2.27% SOLUTION FOR PERITONEAL DIALYSIS [Suspect]
     Indication: PERITONEAL DIALYSIS
     Route: 033
     Dates: start: 20110222, end: 20130604

REACTIONS (9)
  - Death [Fatal]
  - Aortic aneurysm [Unknown]
  - Pancreatitis [Unknown]
  - Gangrene [Unknown]
  - Vascular procedure complication [Unknown]
  - Poor peripheral circulation [Unknown]
  - Intervertebral disc compression [Not Recovered/Not Resolved]
  - Therapy cessation [Unknown]
  - Device occlusion [Unknown]
